FAERS Safety Report 7268054-5 (Version None)
Quarter: 2011Q1

REPORT INFORMATION
  Report Type: 
  Country: None (occurrence: None)
  Receive Date: 20110124
  Receipt Date: 20110110
  Transmission Date: 20110831
  Serious: Yes (Other)
  Sender: FDA-Public Use
  Company Number: GB-ACCORD-007521

PATIENT
  Age: 65 Year
  Sex: Male

DRUGS (7)
  1. AZATHIOPRINE [Concomitant]
  2. MYCOPHENOLATE MOFETIL [Suspect]
     Indication: RENAL VASCULITIS
     Dosage: 1.00-G-2.00PER-1.0DAYS
  3. PREDNISOLONE [Suspect]
     Indication: RENAL VASCULITIS
     Dosage: 25.00-MG
     Dates: start: 20080901
  4. TRIMETHOPRIM + SULFAMETHOXAZOLE [Concomitant]
  5. RITUXIMAB (RITUXIMAB) [Suspect]
     Indication: RENAL VASCULITIS
     Dosage: 375.00-MG/M2-1.00PER 1.0WEEKS
     Dates: start: 20090501, end: 20091201
  6. CYCLOPHOSPHAMIDE [Concomitant]
  7. METHYLPREDNISOLONE [Concomitant]

REACTIONS (9)
  - LOWER RESPIRATORY TRACT INFECTION [None]
  - CONDITION AGGRAVATED [None]
  - MYELITIS TRANSVERSE [None]
  - LEUKOPENIA [None]
  - RENAL VASCULITIS [None]
  - OFF LABEL USE [None]
  - VASCULITIS [None]
  - PLEURAL FIBROSIS [None]
  - CUSHING'S SYNDROME [None]
